FAERS Safety Report 23718060 (Version 1)
Quarter: 2024Q2

REPORT INFORMATION
  Report Type: Spontaneous
  Country: US (occurrence: US)
  Receive Date: 20240408
  Receipt Date: 20240408
  Transmission Date: 20240715
  Serious: Yes (Hospitalization, Other)
  Sender: FDA-Public Use
  Company Number: US-MELINTA THERAPEUTICS, LLC-US-MLNT-24-00187

PATIENT

DRUGS (13)
  1. METOPROLOL SUCCINATE [Suspect]
     Active Substance: METOPROLOL SUCCINATE
     Indication: Product used for unknown indication
     Route: 048
  2. TAGRISSO [Suspect]
     Active Substance: OSIMERTINIB
     Indication: Human epidermal growth factor receptor positive
     Dosage: 80 MILLIGRAM, QD
     Route: 048
     Dates: start: 20240223, end: 20240226
  3. TAGRISSO [Suspect]
     Active Substance: OSIMERTINIB
     Indication: Non-small cell lung cancer metastatic
     Dosage: UNK
     Dates: start: 20240308
  4. AMLODIPINE [Concomitant]
     Active Substance: AMLODIPINE BESYLATE
     Indication: Product used for unknown indication
  5. ASPIRIN [Concomitant]
     Active Substance: ASPIRIN
     Indication: Product used for unknown indication
  6. LASIX [Concomitant]
     Active Substance: FUROSEMIDE
     Indication: Product used for unknown indication
  7. KEPPRA [Concomitant]
     Active Substance: LEVETIRACETAM
     Indication: Product used for unknown indication
  8. LISINOPRIL [Concomitant]
     Active Substance: LISINOPRIL
     Indication: Product used for unknown indication
  9. FLOMAX [Concomitant]
     Active Substance: TAMSULOSIN HYDROCHLORIDE
     Indication: Product used for unknown indication
  10. HAWTHORN BERRIES [CRATAEGUS SPP.] [Concomitant]
     Indication: Product used for unknown indication
  11. BLACK SEED OIL [Concomitant]
     Indication: Product used for unknown indication
  12. SOURSOP BITTERS [Concomitant]
     Indication: Product used for unknown indication
  13. APRICOT SEEDS [Concomitant]
     Indication: Product used for unknown indication

REACTIONS (6)
  - Lymphadenopathy [Unknown]
  - Lung adenocarcinoma [Unknown]
  - Lymphoproliferative disorder [Unknown]
  - Chronic lymphocytic leukaemia [Unknown]
  - Nodal marginal zone B-cell lymphoma [Unknown]
  - Immune thrombocytopenia [Unknown]
